FAERS Safety Report 4616740-5 (Version None)
Quarter: 2005Q2

REPORT INFORMATION
  Report Type: 
  Country: None (occurrence: None)
  Receive Date: 20050311
  Receipt Date: 20041118
  Transmission Date: 20051028
  Serious: Yes (Hospitalization)
  Sender: FDA-Public Use
  Company Number: 2004-00840

PATIENT
  Age: 48 Year
  Sex: Male
  Weight: 70.7 kg

DRUGS (2)
  1. VELCADE [Suspect]
     Indication: MULTIPLE MYELOMA
     Dosage: 2.40 MG, IV BOLUS
     Route: 040
     Dates: start: 20040709, end: 20041112
  2. PAMIDRONATE SODIUM (PAMIDRONATE SODIUM) [Concomitant]

REACTIONS (2)
  - HEADACHE [None]
  - HERPES ZOSTER [None]
